FAERS Safety Report 9316796 (Version 1)
Quarter: 2013Q2

REPORT INFORMATION
  Report Type: Spontaneous
  Country: US (occurrence: US)
  Receive Date: 20130530
  Receipt Date: 20130530
  Transmission Date: 20140414
  Serious: Yes (Other)
  Sender: FDA-Public Use
  Company Number: US-MYLANLABS-2013S1005945

PATIENT
  Sex: Female
  Weight: 68.04 kg

DRUGS (4)
  1. ZOLPIDEM TARTRATE TABLETS [Suspect]
     Indication: INSOMNIA
     Route: 048
     Dates: start: 2012, end: 2012
  2. ZOLPIDEM TARTRATE TABLETS [Suspect]
     Indication: INSOMNIA
     Route: 048
     Dates: start: 2012
  3. ZETIA [Concomitant]
  4. VITAMINS [Concomitant]

REACTIONS (3)
  - Dependence [Not Recovered/Not Resolved]
  - Drug effect decreased [Not Recovered/Not Resolved]
  - Insomnia [Not Recovered/Not Resolved]
